FAERS Safety Report 7867869-X (Version None)
Quarter: 2011Q4

REPORT INFORMATION
  Report Type: 
  Country: None (occurrence: None)
  Receive Date: 20111028
  Receipt Date: 20111021
  Transmission Date: 20120403
  Serious: No
  Sender: FDA-Public Use
  Company Number: US-B.I. PHARMACEUTICALS,INC./RIDGEFIELD-2011-BP-24722BP

PATIENT
  Sex: Male

DRUGS (4)
  1. ENALAPRIL MALEATE [Concomitant]
     Indication: CORONARY ARTERY DISEASE
  2. DILTIAZEM HCL [Concomitant]
  3. LIPITOR [Concomitant]
     Indication: CORONARY ARTERY DISEASE
  4. PRADAXA [Suspect]
     Indication: ATRIAL FIBRILLATION
     Dosage: 300 MG
     Route: 048
     Dates: start: 20110401

REACTIONS (1)
  - CONSTIPATION [None]
